FAERS Safety Report 10971646 (Version 1)
Quarter: 2015Q1

REPORT INFORMATION
  Report Type: Report from Study
  Country: ES (occurrence: ES)
  Receive Date: 20150331
  Receipt Date: 20150331
  Transmission Date: 20150721
  Serious: Yes (Hospitalization)
  Sender: FDA-Public Use
  Company Number: ES-BAYER-2015-053404

PATIENT
  Age: 88 Year
  Sex: Male

DRUGS (6)
  1. ADIRO 100MG COATED TABLETS, 30 TABLETS [Suspect]
     Active Substance: ASPIRIN
     Dosage: 100 MG, QD
     Route: 048
     Dates: start: 2014, end: 2015
  2. RAMIPRIL. [Concomitant]
     Active Substance: RAMIPRIL
     Dosage: 2.5 MG, QD
  3. ATORVASTATIN [Concomitant]
     Active Substance: ATORVASTATIN
     Dosage: 40 MG, QD
  4. APIXABAN [Interacting]
     Active Substance: APIXABAN
     Indication: ISCHAEMIC STROKE
     Dosage: 2.5 MG, BID
     Route: 048
     Dates: start: 2014, end: 20150306
  5. ANAGASTRA [Concomitant]
     Active Substance: PANTOPRAZOLE SODIUM
     Dosage: 20 MG, QD
  6. ATENOLOL. [Concomitant]
     Active Substance: ATENOLOL
     Dosage: 25 MG, QD

REACTIONS (3)
  - Upper gastrointestinal haemorrhage [Recovered/Resolved]
  - Angina pectoris [Recovered/Resolved]
  - Haemorrhagic anaemia [Recovered/Resolved]

NARRATIVE: CASE EVENT DATE: 20150303
